FAERS Safety Report 9937166 (Version 1)
Quarter: 2014Q1

REPORT INFORMATION
  Report Type: Spontaneous
  Country: BR (occurrence: BR)
  Receive Date: 20140301
  Receipt Date: 20140301
  Transmission Date: 20141002
  Serious: Yes (Hospitalization)
  Sender: FDA-Public Use
  Company Number: BR-ROCHE-1355831

PATIENT
  Sex: Male
  Weight: 72 kg

DRUGS (3)
  1. RIVOTRIL [Suspect]
     Indication: PANIC DISORDER
     Route: 048
  2. NATRILIX [Concomitant]
     Indication: HYPERTENSION
     Dosage: NATRILIX SR
     Route: 048
  3. HIDANTAL [Concomitant]
     Route: 048

REACTIONS (2)
  - Meningioma [Unknown]
  - Gamma-glutamyltransferase increased [Unknown]
